FAERS Safety Report 8976097 (Version 1)
Quarter: 2012Q4

REPORT INFORMATION
  Report Type: 
  Country: US (occurrence: US)
  Receive Date: 20121220
  Receipt Date: 20121220
  Transmission Date: 20130627
  Serious: Yes (Other)
  Sender: FDA-Public Use
  Company Number: PHEH2012US024878

PATIENT
  Age: 64 Year
  Sex: Male

DRUGS (1)
  1. EXTAVIA [Suspect]
     Dosage: 0.3 mg, QOD
     Route: 058

REACTIONS (1)
  - Bladder cancer [Unknown]
